FAERS Safety Report 9381531 (Version 2)
Quarter: 2013Q3

REPORT INFORMATION
  Report Type: Spontaneous
  Country: IT (occurrence: IT)
  Receive Date: 20130703
  Receipt Date: 20130801
  Transmission Date: 20140515
  Serious: Yes (Death)
  Sender: FDA-Public Use
  Company Number: PHHY2013IT068962

PATIENT
  Sex: Male

DRUGS (12)
  1. ZOMETA [Suspect]
     Dosage: 4 MG, CYCLIC
     Route: 042
     Dates: start: 20120221, end: 20130528
  2. TAXOTERE [Suspect]
     Dosage: 75 MG/M2, CYCLIC
     Route: 042
     Dates: start: 20130221, end: 20130528
  3. ENANTONE [Suspect]
     Indication: PROSTATE CANCER
     Dosage: 1 DF (VIAL) EVERY 4 WEEKS
     Route: 030
     Dates: start: 20110501, end: 20130528
  4. TRIATEC [Concomitant]
     Indication: HYPERTENSION
     Dosage: 5 MG, BID
  5. CASODEX [Concomitant]
     Dosage: 50 MG, UNK
     Route: 048
     Dates: start: 20121123, end: 20130221
  6. GLICONORM [Concomitant]
     Indication: TYPE 2 DIABETES MELLITUS
     Dosage: 1 DF, QD
  7. SOTALEX [Concomitant]
     Dosage: 0.25 DF, THREE TIMES DAILY
  8. ZANIDIP [Concomitant]
     Dosage: 1 DF, QD
  9. LUVION [Concomitant]
     Dosage: 1 DF, QD
  10. COUMADINE [Concomitant]
     Dosage: UNK UKN, UNK
     Dates: end: 20130524
  11. CLIVARINA [Concomitant]
     Dosage: 1 DF, UNK
     Route: 058
  12. LEVEMIR [Concomitant]
     Dosage: 14 U, UNK

REACTIONS (3)
  - Hepatitis cholestatic [Fatal]
  - Metabolic acidosis [Fatal]
  - Renal failure acute [Fatal]
